FAERS Safety Report 13368045 (Version 1)
Quarter: 2017Q1

REPORT INFORMATION
  Report Type: Spontaneous
  Country: ZA (occurrence: ZA)
  Receive Date: 20170324
  Receipt Date: 20170324
  Transmission Date: 20170429
  Serious: Yes (Hospitalization, Other)
  Sender: FDA-Public Use
  Company Number: ZA-ZYDUS-014242

PATIENT
  Age: 19 Year
  Sex: Female

DRUGS (1)
  1. METFORMIN [Suspect]
     Active Substance: METFORMIN HYDROCHLORIDE
     Indication: PRODUCT USED FOR UNKNOWN INDICATION
     Route: 048

REACTIONS (10)
  - Restlessness [Unknown]
  - Anion gap increased [Unknown]
  - Electrocardiogram QT prolonged [Unknown]
  - Intentional overdose [Unknown]
  - Metabolic acidosis [Unknown]
  - Abdominal pain [Unknown]
  - Hypoglycaemia [Unknown]
  - Tachypnoea [Unknown]
  - Cardiac arrest [Unknown]
  - Hypotension [Unknown]
